FAERS Safety Report 19674023 (Version 1)
Quarter: 2021Q3

REPORT INFORMATION
  Report Type: Spontaneous
  Country: US (occurrence: US)
  Receive Date: 20210809
  Receipt Date: 20210809
  Transmission Date: 20211014
  Serious: Yes (Death, Other)
  Sender: FDA-Public Use
  Company Number: US-GRANULES-US-2021GRALIT00434

PATIENT
  Age: 19 Year
  Sex: Female

DRUGS (5)
  1. NARCAN [Interacting]
     Active Substance: NALOXONE HYDROCHLORIDE
     Indication: SUPPORTIVE CARE
     Dosage: ONE DOSE
     Route: 065
  2. ATROPINE. [Interacting]
     Active Substance: ATROPINE
     Indication: SUPPORTIVE CARE
     Route: 065
  3. EPINEPHRINE. [Interacting]
     Active Substance: EPINEPHRINE
     Indication: SUPPORTIVE CARE
     Dosage: TWO UNITS OF EPINEPHRINE
     Route: 065
  4. LAMOTRIGINE. [Suspect]
     Active Substance: LAMOTRIGINE
     Indication: PRODUCT USED FOR UNKNOWN INDICATION
     Route: 065
  5. METHYLONE [Suspect]
     Active Substance: METHYLPREDNISOLONE
     Indication: PRODUCT USED FOR UNKNOWN INDICATION
     Route: 065

REACTIONS (4)
  - Body temperature increased [Fatal]
  - Drug interaction [Fatal]
  - Toxicity to various agents [Fatal]
  - Seizure [Fatal]
